FAERS Safety Report 6997492-0 (Version None)
Quarter: 2010Q3

REPORT INFORMATION
  Report Type: 
  Country: None (occurrence: None)
  Receive Date: 20100918
  Receipt Date: 20091016
  Transmission Date: 20110219
  Serious: No
  Sender: FDA-Public Use
  Company Number: US-WYE-H11736509

PATIENT
  Sex: Female

DRUGS (8)
  1. PRISTIQ [Suspect]
     Indication: DEPRESSION
     Route: 048
  2. PRISTIQ [Suspect]
     Route: 048
  3. VESICARE [Concomitant]
  4. ACETYLSALICYLIC ACID [Concomitant]
  5. FLAXSEED [Concomitant]
  6. FISH OIL, HYDROGENATED [Concomitant]
  7. PRAVACHOL [Concomitant]
  8. OSTEO BIFLEX TRIPLE STRENGTH [Concomitant]

REACTIONS (3)
  - HYPERHIDROSIS [None]
  - PETECHIAE [None]
  - WEIGHT DECREASED [None]
